FAERS Safety Report 7955220-6 (Version None)
Quarter: 2011Q4

REPORT INFORMATION
  Report Type: 
  Country: None (occurrence: None)
  Receive Date: 20111202
  Receipt Date: 20111121
  Transmission Date: 20120403
  Serious: Yes (Other)
  Sender: FDA-Public Use
  Company Number: JP-CELGENEUS-087-21880-11030194

PATIENT
  Sex: Female

DRUGS (20)
  1. REVLIMID [Suspect]
     Dosage: 15 MILLIGRAM
     Route: 048
     Dates: start: 20110204, end: 20110419
  2. YOUPIS [Concomitant]
     Indication: PROPHYLAXIS
     Dosage: 10 DROPS
     Route: 048
     Dates: start: 20110113, end: 20110402
  3. FAMOTIDINE [Concomitant]
     Indication: PROPHYLAXIS
     Dosage: 20 MILLIGRAM
     Route: 048
     Dates: start: 20110113, end: 20110402
  4. LENADEX [Suspect]
     Dosage: 40 MILLIGRAM
     Route: 048
     Dates: start: 20110310, end: 20110330
  5. FAMOTIDINE [Concomitant]
     Dosage: 20 MILLIGRAM
     Route: 048
     Dates: start: 20110407, end: 20110725
  6. MAGNESIUM OXIDE [Concomitant]
     Indication: PROPHYLAXIS
     Dosage: 1 GRAM
     Route: 048
     Dates: start: 20110113, end: 20110402
  7. MAGNESIUM OXIDE [Concomitant]
     Dosage: 1 GRAM
     Route: 048
     Dates: start: 20110407, end: 20110725
  8. REVLIMID [Suspect]
     Indication: MULTIPLE MYELOMA
     Dosage: 10 MILLIGRAM
     Route: 048
     Dates: start: 20110113, end: 20110203
  9. REVLIMID [Suspect]
     Dosage: 10 MILLIGRAM
     Route: 048
     Dates: start: 20110524, end: 20110614
  10. DEXAMETHASONE SODIUM PHOSPHATE [Concomitant]
     Indication: MULTIPLE MYELOMA
     Dosage: 33 MILLIGRAM
     Route: 048
     Dates: start: 20110113, end: 20110201
  11. ASPIRIN [Concomitant]
     Dosage: 100 MILLIGRAM
     Route: 048
     Dates: start: 20110407, end: 20110725
  12. PANPYOTIN [Concomitant]
     Dosage: 2 GRAM
     Route: 048
     Dates: start: 20110407, end: 20110725
  13. LENADEX [Suspect]
     Indication: MULTIPLE MYELOMA
     Dosage: 40 MILLIGRAM
     Route: 048
     Dates: start: 20110210, end: 20110301
  14. REVLIMID [Suspect]
     Dosage: 15 MILLIGRAM
     Route: 048
     Dates: start: 20110310, end: 20110330
  15. LENADEX [Suspect]
     Dosage: 40 MILLIGRAM
     Route: 048
     Dates: start: 20110407, end: 20110426
  16. PANPYOTIN [Concomitant]
     Indication: PROPHYLAXIS
     Dosage: 2 GRAM
     Route: 048
     Dates: start: 20110113, end: 20110402
  17. REVLIMID [Suspect]
     Dosage: 10 MILLIGRAM
     Route: 048
     Dates: start: 20110210, end: 20110302
  18. REVLIMID [Suspect]
     Dosage: 15 MILLIGRAM
     Route: 048
     Dates: start: 20110407, end: 20110419
  19. REVLIMID [Suspect]
     Dosage: 10 MILLIGRAM
     Route: 048
     Dates: start: 20110621, end: 20110705
  20. ASPIRIN [Concomitant]
     Indication: PROPHYLAXIS
     Dosage: 100 MILLIGRAM
     Route: 048
     Dates: start: 20110113, end: 20110402

REACTIONS (8)
  - NEUTROPENIA [None]
  - URTICARIA [None]
  - HEPATITIS B [None]
  - PLATELET COUNT DECREASED [None]
  - NEUTROPHIL COUNT DECREASED [None]
  - EYELID OEDEMA [None]
  - CONSTIPATION [None]
  - NEUROPATHY PERIPHERAL [None]
